FAERS Safety Report 7179939-2 (Version None)
Quarter: 2010Q4

REPORT INFORMATION
  Report Type: 
  Country: None (occurrence: None)
  Receive Date: 20101221
  Receipt Date: 20101215
  Transmission Date: 20110411
  Serious: Yes (Other)
  Sender: FDA-Public Use
  Company Number: US-AMGEN-USASP2010003858

PATIENT

DRUGS (7)
  1. NPLATE [Suspect]
     Indication: IDIOPATHIC THROMBOCYTOPENIC PURPURA
     Dosage: 2 A?G, QWK
     Dates: start: 20040325
  2. TRICOR [Concomitant]
     Dosage: 48 MG, QD
  3. METFORMIN HCL [Concomitant]
     Dosage: 500 MG, BID
  4. LANSOPRAZOLE [Concomitant]
     Dosage: 30 MG, QD
  5. VALSARTAN [Concomitant]
     Dosage: 80 MG, QD
  6. CENTRUM SILVER                     /01292501/ [Concomitant]
     Dosage: UNK UNK, QD
  7. TYLENOL (CAPLET) [Concomitant]
     Dosage: 650 MG, UNK

REACTIONS (2)
  - MULTIPLE MYELOMA [None]
  - PAIN IN EXTREMITY [None]
